FAERS Safety Report 7489134-5 (Version None)
Quarter: 2011Q2

REPORT INFORMATION
  Report Type: 
  Country: None (occurrence: None)
  Receive Date: 20110518
  Receipt Date: 20110509
  Transmission Date: 20111010
  Serious: Yes (Life-Threatening, Hospitalization, Other)
  Sender: FDA-Public Use
  Company Number: FR-AMGEN-FRASP2011011689

PATIENT
  Age: 76 Year

DRUGS (1)
  1. NPLATE [Suspect]
     Indication: IDIOPATHIC THROMBOCYTOPENIC PURPURA
     Dosage: UNK UNK, QWK
     Route: 058
     Dates: start: 20101208, end: 20101229

REACTIONS (3)
  - RESPIRATORY DISTRESS [None]
  - LUNG INFILTRATION [None]
  - INTERSTITIAL LUNG DISEASE [None]
